FAERS Safety Report 6498900-4 (Version None)
Quarter: 2009Q4

REPORT INFORMATION
  Report Type: 
  Country: None (occurrence: None)
  Receive Date: 20091215
  Receipt Date: 20091203
  Transmission Date: 20100525
  Serious: Yes (Death, Hospitalization)
  Sender: FDA-Public Use
  Company Number: US-PFIZER INC-2009257801

PATIENT
  Sex: Male
  Weight: 75.737 kg

DRUGS (21)
  1. SUNITINIB MALATE [Suspect]
     Indication: RENAL CELL CARCINOMA
     Dosage: 50 MG, 1X/DAY
     Route: 048
     Dates: start: 20090324, end: 20090818
  2. TARCEVA [Suspect]
     Indication: RENAL CELL CARCINOMA
     Dosage: 150 MG, 1X/DAY
     Route: 048
     Dates: start: 20090324, end: 20090818
  3. ATIVAN [Concomitant]
     Indication: ANXIETY
     Dosage: 1 MG, EVERY 6 HOURS
     Route: 048
  4. OXYCODONE [Concomitant]
     Dosage: 5 MG, 1-2TAB, Q2-4H PP
     Route: 048
  5. BUPROPION HYDROCHLORIDE [Concomitant]
     Dosage: 150 MG, 1 TAB EVERY BEDTIME
     Route: 048
  6. SINEMET [Concomitant]
     Indication: RESTLESS LEGS SYNDROME
     Dosage: 50/200 MG AT BEDTIME
     Route: 048
  7. PROCHLORPERAZINE MALEATE [Concomitant]
     Indication: VOMITING
     Dosage: 10MG, EVERY 6 HOURS IF NEEDED
     Route: 048
  8. DOCUSATE SODIUM [Concomitant]
     Dosage: 250 MG, 2 CAPSULES 2X/DAY
  9. FIBERCON [Concomitant]
     Dosage: 625 MG, UNK
     Route: 048
  10. VIAGRA [Concomitant]
     Dosage: 100 MG, 1 TAB APPROXIMATELY 1 HOUR PRIOR TO SEXUAL ACTIVITY
     Route: 048
  11. ZOFRAN [Concomitant]
     Indication: NAUSEA
     Dosage: 6 MG, 2X/DAY AS NEEDED
  12. MORPHINE [Concomitant]
     Dosage: 15MG SR TAB, TWO TABLETS EVERY 8 HOURS
     Route: 048
  13. CYCLOBENZAPRINE [Concomitant]
     Indication: MUSCLE SPASMS
     Dosage: 10 MG, AT BEDTIME AS NEEDED
  14. METROGEL [Concomitant]
     Dosage: 0.75%, 3 TIMES DAILY
     Route: 061
  15. SIMVASTATIN [Concomitant]
     Dosage: 20MG, ONE TABLET EVERY DAY WITH EVENING CHOLESTEROL
     Route: 048
  16. DURAGESIC-100 [Concomitant]
     Dosage: 200 UG, PER HOUR, CHANGE EVERY 3 DAYS
  17. OXYFAST [Concomitant]
     Indication: PAIN
     Dosage: 20-60 MG, EVERY 1 HOUR
  18. LACTULOSE [Concomitant]
     Indication: CONSTIPATION
     Dosage: 10G/15ML AT 2 TABLESPOONS 4 TIMES DAILY
  19. NORVASC [Concomitant]
     Dosage: 2.5 MG, AT BEDTIME
  20. HYDROXYZINE [Concomitant]
     Dosage: 25 MG, 2 TABLETS 3X/DAY
  21. SENNA [Concomitant]
     Dosage: 8.6 MG, 3 TABLETS 2X/DAY

REACTIONS (4)
  - DISEASE PROGRESSION [None]
  - RENAL CELL CARCINOMA STAGE IV [None]
  - RENAL FAILURE [None]
  - RENAL FAILURE ACUTE [None]
